APPROVED DRUG PRODUCT: CARBOPLATIN
Active Ingredient: CARBOPLATIN
Strength: 600MG/60ML (10MG/ML)
Dosage Form/Route: INJECTABLE;INTRAVENOUS
Application: A219999 | Product #004 | TE Code: AP
Applicant: QILU PHARMACEUTICAL HAINAN CO LTD
Approved: Feb 4, 2026 | RLD: No | RS: No | Type: RX